FAERS Safety Report 8610381-0 (Version None)
Quarter: 2012Q3

REPORT INFORMATION
  Report Type: 
  Country: None (occurrence: None)
  Receive Date: 20120822
  Receipt Date: 20120820
  Transmission Date: 20120928
  Serious: Yes (Death, Hospitalization)
  Sender: FDA-Public Use
  Company Number: PHEH2012US011884

PATIENT
  Sex: Female
  Weight: 79.09 kg

DRUGS (1)
  1. EXJADE [Suspect]
     Indication: IRON OVERLOAD
     Dosage: 1500 MG DAILY
     Route: 048
     Dates: start: 20120401

REACTIONS (5)
  - HYPOXIA [None]
  - RESPIRATORY DISTRESS [None]
  - ASTHENIA [None]
  - MYELODYSPLASTIC SYNDROME [None]
  - HAEMOGLOBIN DECREASED [None]
